FAERS Safety Report 23991024 (Version 1)
Quarter: 2024Q2

REPORT INFORMATION
  Report Type: Spontaneous
  Country: US (occurrence: US)
  Receive Date: 20240619
  Receipt Date: 20240619
  Transmission Date: 20240715
  Serious: Yes (Other)
  Sender: FDA-Public Use
  Company Number: US-JNJFOC-20240616821

PATIENT
  Sex: Male

DRUGS (3)
  1. RYBREVANT [Suspect]
     Active Substance: AMIVANTAMAB-VMJW
     Indication: Product used for unknown indication
     Dosage: RECEIVED RECENT DOSE ON 04-JUN-2024
     Route: 042
     Dates: start: 202204
  2. TYLENOL [Suspect]
     Active Substance: ACETAMINOPHEN
     Indication: Product used for unknown indication
     Route: 050
     Dates: start: 20240531
  3. PEPCID [Concomitant]
     Active Substance: FAMOTIDINE
     Route: 050
     Dates: start: 20240531

REACTIONS (2)
  - Heart rate increased [Unknown]
  - Hypertension [Unknown]
